FAERS Safety Report 9356452 (Version 2)
Quarter: 2013Q3

REPORT INFORMATION
  Report Type: Report from Study
  Country: US (occurrence: US)
  Receive Date: 20130619
  Receipt Date: 20130926
  Transmission Date: 20140515
  Serious: Yes (Other)
  Sender: FDA-Public Use
  Company Number: US-RB-023241-09

PATIENT
  Age: 51 Year
  Sex: Female

DRUGS (5)
  1. SUBOXONE TABLETS [Suspect]
     Indication: DRUG DEPENDENCE
     Dosage: DOSING DETAILS NOT PROVIDED
     Route: 065
  2. SUBOXONE TABLETS [Suspect]
     Route: 060
     Dates: start: 20091021, end: 20091022
  3. SUBOXONE TABLETS [Suspect]
     Route: 060
     Dates: start: 20091022, end: 201002
  4. SUBOXONE TABLETS [Suspect]
     Route: 060
     Dates: start: 201002
  5. SUBOXONE FILM [Suspect]
     Indication: PRODUCT USED FOR UNKNOWN INDICATION
     Dosage: SUBOXONE FILM; DOSING DETAILS UNKNOWN
     Route: 060

REACTIONS (21)
  - Psychomotor hyperactivity [Recovered/Resolved]
  - Agitation [Unknown]
  - Arthralgia [Unknown]
  - Hepatitis [Unknown]
  - Condition aggravated [Recovered/Resolved]
  - Aggression [Unknown]
  - Protein urine present [Not Recovered/Not Resolved]
  - Migraine [Recovered/Resolved]
  - Feeling jittery [Unknown]
  - Groin pain [Unknown]
  - Weight increased [Unknown]
  - Condition aggravated [Unknown]
  - Condition aggravated [Unknown]
  - Vomiting [Unknown]
  - Hypoaesthesia [Unknown]
  - Nervousness [Not Recovered/Not Resolved]
  - Back pain [Unknown]
  - Lung neoplasm malignant [Not Recovered/Not Resolved]
  - Brain cancer metastatic [Not Recovered/Not Resolved]
  - Insomnia [Not Recovered/Not Resolved]
  - Weight decreased [Not Recovered/Not Resolved]
